FAERS Safety Report 18184112 (Version 3)
Quarter: 2020Q3

REPORT INFORMATION
  Report Type: Spontaneous
  Country: SK (occurrence: SK)
  Receive Date: 20200823
  Receipt Date: 20200828
  Transmission Date: 20201103
  Serious: Yes (Other)
  Sender: FDA-Public Use
  Company Number: SK-ROCHE-2664035

PATIENT
  Sex: Female

DRUGS (1)
  1. MABTHERA [Suspect]
     Active Substance: RITUXIMAB
     Indication: RHEUMATOID ARTHRITIS
     Dosage: 2 TIMES
     Route: 042
     Dates: start: 202008

REACTIONS (1)
  - Infarction [Recovering/Resolving]

NARRATIVE: CASE EVENT DATE: 20200814
